FAERS Safety Report 5931975-7 (Version None)
Quarter: 2008Q4

REPORT INFORMATION
  Report Type: 
  Country: None (occurrence: None)
  Receive Date: 20081027
  Receipt Date: 20081016
  Transmission Date: 20090506
  Serious: Yes (Other)
  Sender: FDA-Public Use
  Company Number: FR-BAXTER-2008BH011054

PATIENT
  Age: 37 Year
  Sex: Female

DRUGS (1)
  1. SODIUM CHLORIDE 0.9% IN PLASTIC CONTAINER [Suspect]
     Indication: PLASMAPHERESIS
     Dosage: DOSE UNIT:UNKNOWN
     Route: 042
     Dates: start: 20081009, end: 20081009

REACTIONS (1)
  - ASTHMATIC CRISIS [None]
